FAERS Safety Report 7451692-4 (Version None)
Quarter: 2011Q2

REPORT INFORMATION
  Report Type: 
  Country: None (occurrence: None)
  Receive Date: 20110502
  Receipt Date: 20100623
  Transmission Date: 20111010
  Serious: No
  Sender: FDA-Public Use
  Company Number: US-ASTRAZENECA-2010SE29403

PATIENT
  Age: 63 Year
  Sex: Female
  Weight: 93 kg

DRUGS (8)
  1. NORVASC [Concomitant]
  2. NAPROXEN [Concomitant]
  3. DETROL [Concomitant]
  4. NEXIUM [Suspect]
     Route: 048
     Dates: end: 20100623
  5. BYSTOLIC [Concomitant]
  6. PREMARIN [Concomitant]
  7. LIPITOR [Concomitant]
  8. AMBIEN [Concomitant]

REACTIONS (2)
  - RASH [None]
  - INCORRECT DOSE ADMINISTERED [None]
